FAERS Safety Report 5782483-8 (Version None)
Quarter: 2008Q2

REPORT INFORMATION
  Report Type: 
  Country: None (occurrence: None)
  Receive Date: 20080623
  Receipt Date: 20080616
  Transmission Date: 20081010
  Serious: Yes (Other)
  Sender: FDA-Public Use
  Company Number: PHHY2008CA11436

PATIENT
  Sex: Female

DRUGS (3)
  1. SANDOSTATIN LAR [Suspect]
     Indication: DIARRHOEA
     Dosage: 20 MG, QMO
     Route: 030
     Dates: start: 20060207
  2. CHEMOTHERAPEUTICS NOS [Concomitant]
  3. ANALGESICS [Concomitant]

REACTIONS (1)
  - FRACTURED SACRUM [None]
